FAERS Safety Report 12338235 (Version 1)
Quarter: 2016Q2

REPORT INFORMATION
  Report Type: Spontaneous
  Country: US (occurrence: US)
  Receive Date: 20160505
  Receipt Date: 20160505
  Transmission Date: 20160815
  Serious: No
  Sender: FDA-Public Use
  Company Number: US-BEH-2015053156

PATIENT
  Age: 14 Year
  Sex: Male

DRUGS (1)
  1. STIMATE [Suspect]
     Active Substance: DESMOPRESSIN ACETATE
     Indication: VON WILLEBRAND^S DISEASE
     Dosage: 1.5 MG/ML;1 SPRAY EACH NOSTRIL
     Route: 045

REACTIONS (2)
  - Epistaxis [Unknown]
  - Ligament sprain [Unknown]

NARRATIVE: CASE EVENT DATE: 201505
